FAERS Safety Report 21873602 (Version 1)
Quarter: 2023Q1

REPORT INFORMATION
  Report Type: Spontaneous
  Country: US (occurrence: None)
  Receive Date: 20230116
  Receipt Date: 20230116
  Transmission Date: 20230418
  Serious: No
  Sender: FDA-Public Use
  Company Number: None

PATIENT
  Age: 65 Year
  Sex: Female
  Weight: 81 kg

DRUGS (8)
  1. TRELEGY ELLIPTA [Suspect]
     Active Substance: FLUTICASONE FUROATE\UMECLIDINIUM BROMIDE\VILANTEROL TRIFENATATE
     Indication: Asthma
     Dosage: FREQUENCY : DAILY;?
     Route: 055
     Dates: start: 20220901, end: 20230113
  2. VERZENIO [Concomitant]
     Active Substance: ABEMACICLIB
  3. ATORVASTATIN [Concomitant]
     Active Substance: ATORVASTATIN
  4. VITAMIN D NOS [Concomitant]
     Active Substance: VITAMIN D NOS
  5. CLARITIN [Concomitant]
     Active Substance: LORATADINE
  6. TUMS [Concomitant]
     Active Substance: CALCIUM CARBONATE
  7. PREVACID [Concomitant]
     Active Substance: LANSOPRAZOLE
  8. TYLENOL PM [Concomitant]
     Active Substance: ACETAMINOPHEN\DIPHENHYDRAMINE

REACTIONS (5)
  - Chest discomfort [None]
  - Hypertension [None]
  - Dyspnoea [None]
  - Gait disturbance [None]
  - Decreased appetite [None]

NARRATIVE: CASE EVENT DATE: 20230102
